FAERS Safety Report 8479003-6 (Version None)
Quarter: 2012Q2

REPORT INFORMATION
  Report Type: 
  Country: None (occurrence: None)
  Receive Date: 20120629
  Receipt Date: 20120626
  Transmission Date: 20120825
  Serious: Yes (Hospitalization)
  Sender: FDA-Public Use
  Company Number: IL-MERCK-1206USA04440

PATIENT
  Age: 60 Year
  Sex: Female

DRUGS (1)
  1. JANUMET [Suspect]
     Route: 048
     Dates: start: 20120401

REACTIONS (2)
  - COUGH [None]
  - OEDEMA [None]
